FAERS Safety Report 10467871 (Version 2)
Quarter: 2014Q4

REPORT INFORMATION
  Report Type: Report from Study
  Country: CL (occurrence: CL)
  Receive Date: 20140922
  Receipt Date: 20141001
  Transmission Date: 20150528
  Serious: Yes (Hospitalization)
  Sender: FDA-Public Use
  Company Number: PHHY2014CL123145

PATIENT
  Sex: Male

DRUGS (2)
  1. LEPONEX [Suspect]
     Active Substance: CLOZAPINE
     Dosage: 200 MG, QD (AT NIGHT) FOR A WEEK
  2. LEPONEX [Suspect]
     Active Substance: CLOZAPINE
     Dosage: 150 MG, USUALLY

REACTIONS (2)
  - Affective disorder [Unknown]
  - Psychomotor hyperactivity [Recovered/Resolved]

NARRATIVE: CASE EVENT DATE: 20140917
